FAERS Safety Report 6264976-2 (Version None)
Quarter: 2009Q3

REPORT INFORMATION
  Report Type: 
  Country: None (occurrence: None)
  Receive Date: 20090709
  Receipt Date: 20090709
  Transmission Date: 20100115
  Serious: Yes (Other)
  Sender: FDA-Public Use
  Company Number: None

PATIENT
  Sex: Male
  Weight: 76.2043 kg

DRUGS (2)
  1. OXALIPLATIN [Suspect]
     Indication: COLON CANCER
     Dosage: 165 MG Q 2 WKS IV
     Route: 042
     Dates: start: 20081219, end: 20090508
  2. OXALIPLATIN [Suspect]
     Dosage: 5 FU; 3880 MG OVER 460 CONTINUOUS INFUSION Q 2 WKS IV
     Route: 042
     Dates: start: 20081219, end: 20090508

REACTIONS (1)
  - PNEUMONITIS [None]
